FAERS Safety Report 4394059-8 (Version None)
Quarter: 2004Q3

REPORT INFORMATION
  Report Type: 
  Country: None (occurrence: None)
  Receive Date: 20040709
  Receipt Date: 20040706
  Transmission Date: 20050211
  Serious: Yes (Disabling, Other)
  Sender: FDA-Public Use
  Company Number: GB-MERCK-0407GBR00049

PATIENT
  Age: 42 Year
  Sex: Female
  Weight: 70 kg

DRUGS (3)
  1. ACETAMINOPHEN AND CODEINE PHOSPHATE [Concomitant]
     Indication: BACK PAIN
     Route: 048
     Dates: start: 20011201
  2. FELBINAC [Concomitant]
     Indication: BACK PAIN
     Route: 061
     Dates: start: 20010101
  3. VIOXX [Suspect]
     Indication: BACK PAIN
     Route: 048
     Dates: start: 20030801, end: 20040301

REACTIONS (4)
  - HEADACHE [None]
  - MONOPLEGIA [None]
  - NECK PAIN [None]
  - POST COITAL BLEEDING [None]
